FAERS Safety Report 13546692 (Version 1)
Quarter: 2017Q2

REPORT INFORMATION
  Report Type: Spontaneous
  Country: IT (occurrence: IT)
  Receive Date: 20170515
  Receipt Date: 20170515
  Transmission Date: 20170830
  Serious: Yes (Hospitalization)
  Sender: FDA-Public Use
  Company Number: IT-ELI_LILLY_AND_COMPANY-IT201705002250

PATIENT
  Age: 56 Year
  Sex: Male
  Weight: 61 kg

DRUGS (1)
  1. ERBITUX [Suspect]
     Active Substance: CETUXIMAB
     Indication: HEAD AND NECK CANCER
     Dosage: 696 MG, CYCLICAL
     Route: 042
     Dates: start: 20170504, end: 20170504

REACTIONS (3)
  - Hypoventilation [Unknown]
  - Myoclonus [Unknown]
  - Hypotension [Unknown]

NARRATIVE: CASE EVENT DATE: 20170504
